FAERS Safety Report 6431364-5 (Version None)
Quarter: 2009Q4

REPORT INFORMATION
  Report Type: 
  Country: None (occurrence: None)
  Receive Date: 20091106
  Receipt Date: 20091023
  Transmission Date: 20100525
  Serious: Yes (Disabling, Other)
  Sender: FDA-Public Use
  Company Number: PHHY2009BR46500

PATIENT
  Sex: Female

DRUGS (13)
  1. FORASEQ [Suspect]
     Indication: CHRONIC OBSTRUCTIVE PULMONARY DISEASE
     Dosage: 1 DF, BID
  2. FORASEQ [Suspect]
     Indication: EMPHYSEMA
  3. FORASEQ [Suspect]
     Indication: DYSPNOEA
  4. ARADOIS [Concomitant]
     Indication: HYPERTENSION
     Dosage: 0.5 DF, QD
     Route: 048
     Dates: start: 19990101
  5. ARADOIS H [Concomitant]
     Indication: HYPERTENSION
     Dosage: 1 DF, QD
     Route: 048
     Dates: start: 19990101
  6. LANITOP [Concomitant]
     Indication: CARDIAC DISORDER
     Dosage: 1 DF, QD
     Route: 048
     Dates: start: 19990101
  7. OMEPRAZOLE [Concomitant]
     Indication: CARDIAC DISORDER
     Dosage: 1 DF, QD
     Route: 048
     Dates: start: 19990101
  8. GLIMEPIRIDE [Concomitant]
     Indication: DIABETES MELLITUS
     Dosage: 1 DF, QD
     Route: 048
     Dates: start: 19990101
  9. TYLENOL [Concomitant]
     Indication: BONE PAIN
     Dosage: 1 DF, PRN
     Route: 048
  10. CALCORT [Concomitant]
     Indication: BRONCHITIS
     Dosage: 0.5 DF ON MONDAY AND FRIDAY
     Route: 048
     Dates: start: 19990101
  11. VALERIAN [Concomitant]
     Indication: DRUG DEPENDENCE
     Dosage: 3 DF, QD
     Route: 048
  12. NUTREN 2.0 [Concomitant]
     Dosage: 2 TSP, BID
  13. VENOCUR TRIPLEX [Concomitant]

REACTIONS (14)
  - BONE PAIN [None]
  - CRYING [None]
  - DEMENTIA ALZHEIMER'S TYPE [None]
  - DEPRESSION [None]
  - FAECAL INCONTINENCE [None]
  - FEEDING DISORDER [None]
  - FLATULENCE [None]
  - GAIT DISTURBANCE [None]
  - HEARING DISABILITY [None]
  - MOTOR DYSFUNCTION [None]
  - OSTEOPOROSIS [None]
  - PARKINSON'S DISEASE [None]
  - VISUAL IMPAIRMENT [None]
  - WEIGHT DECREASED [None]
